FAERS Safety Report 9957415 (Version 1)
Quarter: 2014Q1

REPORT INFORMATION
  Report Type: Report from Study
  Country: US (occurrence: US)
  Receive Date: 20140304
  Receipt Date: 20140304
  Transmission Date: 20141002
  Serious: No
  Sender: FDA-Public Use
  Company Number: US-ABBVIE-13P-163-1092777-00

PATIENT
  Age: 57 Year
  Sex: Female
  Weight: 93.52 kg

DRUGS (11)
  1. HUMIRA [Suspect]
     Indication: RHEUMATOID ARTHRITIS
     Dates: start: 201303
  2. PREDNISONE [Concomitant]
     Indication: RHEUMATOID ARTHRITIS
  3. OXYCODONE [Concomitant]
     Indication: PAIN
  4. METOPROLOL [Concomitant]
     Indication: CARDIAC DISORDER
  5. FLECAINIDE ACETATE [Concomitant]
     Indication: CARDIAC DISORDER
  6. ASPIRIN [Concomitant]
     Indication: CARDIAC DISORDER
  7. CRESTOR [Concomitant]
     Indication: BLOOD CHOLESTEROL
  8. DIAZEPAM [Concomitant]
     Indication: ANXIETY
  9. LEVOTHYROXINE [Concomitant]
     Indication: THYROID DISORDER
  10. LEFLUNOMIDE [Concomitant]
     Indication: RHEUMATOID ARTHRITIS
  11. RA ALLERGY RELIEF [Concomitant]
     Indication: MULTIPLE ALLERGIES

REACTIONS (1)
  - Rheumatoid arthritis [Not Recovered/Not Resolved]
